FAERS Safety Report 4715317-0 (Version None)
Quarter: 2005Q3

REPORT INFORMATION
  Report Type: 
  Country: None (occurrence: None)
  Receive Date: 20050715
  Receipt Date: 20050707
  Transmission Date: 20060218
  Serious: Yes (Disabling, Congenital Anomaly, Other)
  Sender: FDA-Public Use
  Company Number: FR-ABBOTT-05P-056-0305090-00

PATIENT
  Sex: Male

DRUGS (1)
  1. DEPAKENE [Suspect]
     Indication: DRUG EXPOSURE DURING PREGNANCY

REACTIONS (9)
  - AUTISM [None]
  - BRACHYCEPHALY [None]
  - CONGENITAL NOSE MALFORMATION [None]
  - CRYPTORCHISM [None]
  - DEVELOPMENTAL DELAY [None]
  - DRUG EXPOSURE DURING PREGNANCY [None]
  - FACIAL DYSMORPHISM [None]
  - STRABISMUS [None]
  - VENTRICULAR SEPTAL DEFECT [None]
